FAERS Safety Report 8167594-4 (Version None)
Quarter: 2012Q1

REPORT INFORMATION
  Report Type: 
  Country: None (occurrence: None)
  Receive Date: 20120103
  Receipt Date: 20111007
  Transmission Date: 20120608
  Serious: No
  Sender: FDA-Public Use
  Company Number: AE-2011-002138

PATIENT
  Age: 61 Year
  Sex: Male
  Weight: 90.7194 kg

DRUGS (4)
  1. RIBAVIRIN [Concomitant]
  2. XANAX [Concomitant]
  3. PEGASYS [Concomitant]
  4. INCIVEK [Suspect]
     Dosage: 2250 MG (750 MG,1 IN 8 HR),ORAL
     Route: 048
     Dates: start: 20110917

REACTIONS (6)
  - FEELING ABNORMAL [None]
  - EATING DISORDER [None]
  - HYPERSOMNIA [None]
  - VOMITING [None]
  - MALAISE [None]
  - DEHYDRATION [None]
